FAERS Safety Report 16367794 (Version 4)
Quarter: 2021Q4

REPORT INFORMATION
  Report Type: Report from Study
  Country: CO (occurrence: CO)
  Receive Date: 20190529
  Receipt Date: 20211010
  Transmission Date: 20220303
  Serious: Yes (Hospitalization, Other)
  Sender: FDA-Public Use
  Company Number: PHHY2019CO119097

PATIENT
  Age: 24 Year
  Sex: Female
  Weight: 56 kg

DRUGS (12)
  1. ELTROMBOPAG OLAMINE [Suspect]
     Active Substance: ELTROMBOPAG OLAMINE
     Indication: Aplastic anaemia
     Dosage: 50 MG, QD
     Route: 048
     Dates: start: 201709
  2. ELTROMBOPAG OLAMINE [Suspect]
     Active Substance: ELTROMBOPAG OLAMINE
     Dosage: 50 MG, QOD (50 MG ONE DAY AND 25 MG THE NEXT DAY)
     Route: 048
     Dates: start: 201904
  3. ELTROMBOPAG OLAMINE [Suspect]
     Active Substance: ELTROMBOPAG OLAMINE
     Dosage: 25 MG, QOD (50 MG ONE DAY AND 25 MG THE NEXT DAY)
     Route: 048
  4. ELTROMBOPAG OLAMINE [Suspect]
     Active Substance: ELTROMBOPAG OLAMINE
     Dosage: 50 MG, QD
     Route: 048
     Dates: start: 20190521
  5. ELTROMBOPAG OLAMINE [Suspect]
     Active Substance: ELTROMBOPAG OLAMINE
     Dosage: 75 MG, (50 MG ONE DAY AND 25 MG THE NEXT DAY)
     Route: 048
  6. ELTROMBOPAG OLAMINE [Suspect]
     Active Substance: ELTROMBOPAG OLAMINE
     Dosage: 50 MG, QD
     Route: 048
     Dates: end: 20190727
  7. ELTROMBOPAG OLAMINE [Suspect]
     Active Substance: ELTROMBOPAG OLAMINE
     Dosage: 75 MG, QD (3 TABLETS OF 25 MG)
     Route: 048
     Dates: start: 20190727
  8. ELTROMBOPAG OLAMINE [Suspect]
     Active Substance: ELTROMBOPAG OLAMINE
     Dosage: 150 MG, QD (TABLETS OF 50 MG)
     Route: 048
     Dates: end: 202108
  9. CYCLOSPORINE [Suspect]
     Active Substance: CYCLOSPORINE
     Indication: Product used for unknown indication
     Dosage: 100 MG, Q12H
     Route: 065
     Dates: start: 201708
  10. CYCLOSPORINE [Suspect]
     Active Substance: CYCLOSPORINE
     Dosage: 50 MG, UNK
     Route: 065
  11. FOLIC ACID [Concomitant]
     Active Substance: FOLIC ACID
     Indication: White blood cell count abnormal
     Dosage: 100 MG, Q8H
     Route: 048
     Dates: start: 201708
  12. OMEPRAZOLE [Concomitant]
     Active Substance: OMEPRAZOLE
     Indication: Gastritis
     Dosage: UNK, QD (DAILY EVERY MORNING), DOSE + DOSE UNIT DOES NOT REMEMBER AND TREATMENT START DATE DOES NOT
     Route: 065

REACTIONS (3)
  - Drug ineffective [Unknown]
  - Platelet count decreased [Unknown]
  - Influenza [Recovered/Resolved]

NARRATIVE: CASE EVENT DATE: 20190401
